FAERS Safety Report 9296710 (Version 2)
Quarter: 2013Q3

REPORT INFORMATION
  Report Type: Spontaneous
  Country: BR (occurrence: BR)
  Receive Date: 20130517
  Receipt Date: 20130723
  Transmission Date: 20140515
  Serious: Yes (Other)
  Sender: FDA-Public Use
  Company Number: PHHY2013BR048920

PATIENT
  Sex: Female

DRUGS (5)
  1. RITALINA [Suspect]
     Indication: DEPRESSION
     Dosage: 0.5 DF, DAILY
  2. RITALINA [Suspect]
     Indication: BIPOLAR DISORDER
     Dosage: 0.25 DF, (SOMETIMES)
  3. RITALINA [Suspect]
     Indication: DISTURBANCE IN ATTENTION
  4. FLUOXETIN [Concomitant]
     Indication: ATTENTION DEFICIT/HYPERACTIVITY DISORDER
     Dosage: 0.5 DF, QD
     Route: 048
  5. INSULIN [Concomitant]
     Dosage: 1 DF, BID

REACTIONS (10)
  - Diabetes mellitus [Unknown]
  - Blood glucose fluctuation [Unknown]
  - Labyrinthitis [Unknown]
  - Drug dependence [Unknown]
  - Feeling abnormal [Unknown]
  - Mood altered [Not Recovered/Not Resolved]
  - Wrong technique in drug usage process [Unknown]
  - Irritability [Not Recovered/Not Resolved]
  - Depressed mood [Unknown]
  - Nervousness [Recovered/Resolved]
